FAERS Safety Report 13796854 (Version 4)
Quarter: 2017Q3

REPORT INFORMATION
  Report Type: Report from Study
  Country: None (occurrence: CH)
  Receive Date: 20170726
  Receipt Date: 20170920
  Transmission Date: 20171127
  Serious: Yes (Hospitalization)
  Sender: FDA-Public Use
  Company Number: CH-ABBVIE-17P-151-2045495-00

PATIENT
  Age: 77 Year
  Sex: Male

DRUGS (4)
  1. DUODOPA [Suspect]
     Active Substance: CARBIDOPA\LEVODOPA
     Indication: PARKINSON^S DISEASE
     Dosage: AM DOSE 7ML, CR DAY 2.5ML/H, CR PM 2.1ML/H, ED 1.5ML 24H THERAPY
     Route: 050
     Dates: start: 20151027
  2. DUODOPA [Suspect]
     Active Substance: CARBIDOPA\LEVODOPA
     Dosage: MD 7ML, CR DAY 2.4ML/H, CR NIGHT 2.0ML/H, ED 1.5ML
     Route: 050
     Dates: end: 20170915
  3. DUODOPA [Suspect]
     Active Substance: CARBIDOPA\LEVODOPA
     Dosage: MD 0ML, CR DAY 2.4ML/H, CR NIGHT 2.0ML/H, ED1.5ML
     Route: 050
     Dates: start: 20170915, end: 20170915
  4. DUODOPA [Suspect]
     Active Substance: CARBIDOPA\LEVODOPA
     Dosage: MD 7ML, CR DAY 2.4ML/H, CR NIGHT 2.0ML/H, ED1.5ML
     Route: 050
     Dates: start: 20170916

REACTIONS (4)
  - Pulmonary embolism [Unknown]
  - Fall [Unknown]
  - Femoral neck fracture [Unknown]
  - Device dislocation [Unknown]

NARRATIVE: CASE EVENT DATE: 2017
